FAERS Safety Report 10096621 (Version 2)
Quarter: 2014Q2

REPORT INFORMATION
  Report Type: Spontaneous
  Country: US (occurrence: US)
  Receive Date: 20140422
  Receipt Date: 20140425
  Transmission Date: 20141212
  Serious: Yes (Other)
  Sender: FDA-Public Use
  Company Number: US-TEVA-476929USA

PATIENT
  Age: 28 Year
  Sex: Female
  Weight: 88.53 kg

DRUGS (3)
  1. PLAN B ONE-STEP [Suspect]
     Indication: POST COITAL CONTRACEPTION
     Dosage: 1.5 MILLIGRAM DAILY;
     Route: 048
     Dates: start: 20140406, end: 20140406
  2. VITAMIN C [Concomitant]
     Indication: VITAMIN SUPPLEMENTATION
  3. MULTIVITAMIN [Concomitant]
     Indication: VITAMIN SUPPLEMENTATION

REACTIONS (4)
  - Pregnancy after post coital contraception [Unknown]
  - Drug ineffective [Unknown]
  - Metrorrhagia [Recovered/Resolved]
  - Abdominal pain lower [Recovered/Resolved]
